FAERS Safety Report 23934142 (Version 1)
Quarter: 2024Q2

REPORT INFORMATION
  Report Type: Spontaneous
  Country: GB (occurrence: GB)
  Receive Date: 20240603
  Receipt Date: 20240603
  Transmission Date: 20240716
  Serious: Yes (Hospitalization, Other)
  Sender: FDA-Public Use
  Company Number: GB-BIOVITRUM-2024-GB-006170

PATIENT
  Age: 62 Year
  Sex: Male

DRUGS (1)
  1. KINERET [Suspect]
     Active Substance: ANAKINRA
     Indication: Rheumatoid arthritis
     Dosage: 100MG/0.67ML SOLUTION FOR INJECTION PRE-FILLED SYRINGES?ONCE DAILY
     Route: 058
     Dates: start: 20240222

REACTIONS (2)
  - Sepsis [Unknown]
  - Blood glucose increased [Recovered/Resolved]
